FAERS Safety Report 6317426-1 (Version None)
Quarter: 2009Q3

REPORT INFORMATION
  Report Type: 
  Country: None (occurrence: None)
  Receive Date: 20090821
  Receipt Date: 20090811
  Transmission Date: 20100115
  Serious: Yes (Hospitalization)
  Sender: FDA-Public Use
  Company Number: US-WYE-H10536809

PATIENT
  Age: 51 Year
  Sex: Female

DRUGS (3)
  1. VENLAFAXINE HCL [Suspect]
     Dosage: OVERDOSE AMOUNT UNKNOWN
     Route: 048
  2. TYLENOL (CAPLET) [Suspect]
     Dosage: OVERDOSE AMOUNT UNKNOWN
  3. METOPROLOL [Suspect]
     Dosage: OVERDOSE AMOUNT UNKNOWN

REACTIONS (5)
  - ACUTE MYOCARDIAL INFARCTION [None]
  - HYPOTENSION [None]
  - OVERDOSE [None]
  - TACHYCARDIA [None]
  - UNRESPONSIVE TO STIMULI [None]
